FAERS Safety Report 5779592-6 (Version None)
Quarter: 2008Q2

REPORT INFORMATION
  Report Type: 
  Country: None (occurrence: None)
  Receive Date: 20080619
  Receipt Date: 20080607
  Transmission Date: 20081010
  Serious: Yes (Other)
  Sender: FDA-Public Use
  Company Number: US-PFIZER INC-2008048839

PATIENT
  Sex: Male
  Weight: 96.2 kg

DRUGS (5)
  1. LYRICA [Suspect]
     Dosage: FREQ:TWICE DAILY
     Dates: start: 20080101, end: 20080328
  2. CARDIAC THERAPY [Concomitant]
  3. ALL OTHER THERAPEUTIC PRODUCTS [Concomitant]
  4. ANALGESICS [Concomitant]
  5. ANTIHYPERTENSIVES [Concomitant]

REACTIONS (4)
  - DYSARTHRIA [None]
  - MENTAL STATUS CHANGES [None]
  - SOMNOLENCE [None]
  - UNRESPONSIVE TO STIMULI [None]
